FAERS Safety Report 21599942 (Version 2)
Quarter: 2023Q4

REPORT INFORMATION
  Report Type: Spontaneous
  Country: IT (occurrence: IT)
  Receive Date: 20221116
  Receipt Date: 20231211
  Transmission Date: 20240109
  Serious: Yes (Other)
  Sender: FDA-Public Use
  Company Number: IT-MINISAL02-890606

PATIENT
  Age: 72 Year
  Sex: Female

DRUGS (3)
  1. HYDROCHLOROTHIAZIDE\LOSARTAN [Suspect]
     Active Substance: HYDROCHLOROTHIAZIDE\LOSARTAN
     Indication: Hypertension
     Dosage: UNK
     Route: 048
     Dates: start: 20220101, end: 20220303
  2. NEBIVOLOL [Concomitant]
     Active Substance: NEBIVOLOL
     Indication: Product used for unknown indication
     Dosage: UNK
     Route: 065
  3. LORAZEPAM [Concomitant]
     Active Substance: LORAZEPAM
     Indication: Product used for unknown indication
     Dosage: UNK
     Route: 065

REACTIONS (2)
  - Hypokalaemia [Recovering/Resolving]
  - Hyponatraemia [Recovering/Resolving]

NARRATIVE: CASE EVENT DATE: 20220303
